FAERS Safety Report 14680216 (Version 4)
Quarter: 2018Q2

REPORT INFORMATION
  Report Type: Spontaneous
  Country: CA (occurrence: CA)
  Receive Date: 20180326
  Receipt Date: 20180612
  Transmission Date: 20180711
  Serious: Yes (Hospitalization)
  Sender: FDA-Public Use
  Company Number: CA-PFIZER INC-2017306808

PATIENT
  Age: 39 Year
  Sex: Female

DRUGS (11)
  1. INFLECTRA [Suspect]
     Active Substance: INFLIXIMAB-DYYB
     Indication: PSORIATIC ARTHROPATHY
     Dosage: 500 MG, CYCLIC (EVERY 0, 2, 6 WEEKS, THEN EVERY 6 WEEKS)
     Route: 042
     Dates: start: 20180109
  2. VIMOVO [Concomitant]
     Active Substance: ESOMEPRAZOLE MAGNESIUM\NAPROXEN
     Dosage: UNK
     Route: 065
  3. CALCIUM [Concomitant]
     Active Substance: CALCIUM
     Dosage: UNK
     Route: 065
  4. INFLECTRA [Suspect]
     Active Substance: INFLIXIMAB-DYYB
     Indication: ANKYLOSING SPONDYLITIS
     Dosage: 500 MG, CYCLIC (EVERY 0, 2, 6 WEEKS, THEN EVERY 6 WEEKS)
     Route: 042
     Dates: start: 20170628
  5. METHOTREXATE SODIUM. [Suspect]
     Active Substance: METHOTREXATE SODIUM
     Dosage: UNK, WEEKLY
  6. AMITRIPTYLINE [Concomitant]
     Active Substance: AMITRIPTYLINE
     Dosage: UNK
     Route: 065
  7. INFLECTRA [Suspect]
     Active Substance: INFLIXIMAB-DYYB
     Dosage: 500 MG, CYCLIC (THEN EVERY 6 WEEKS)
     Route: 042
     Dates: start: 20180529
  8. ZYTRAM [Concomitant]
     Active Substance: TRAMADOL HYDROCHLORIDE
     Dosage: UNK
     Route: 065
  9. ENBREL [Suspect]
     Active Substance: ETANERCEPT
     Dosage: UNK
     Route: 065
  10. HYDROMORPHONE HYDROCHLORIDE. [Suspect]
     Active Substance: HYDROMORPHONE HYDROCHLORIDE
     Dosage: UNK
     Route: 065
  11. FOLIC ACID. [Concomitant]
     Active Substance: FOLIC ACID
     Dosage: UNK
     Route: 065

REACTIONS (7)
  - Secretion discharge [Unknown]
  - Cough [Unknown]
  - Muscular weakness [Unknown]
  - Sinusitis [Unknown]
  - Nasopharyngitis [Unknown]
  - Bronchitis [Unknown]
  - Heart rate irregular [Unknown]

NARRATIVE: CASE EVENT DATE: 201707
